FAERS Safety Report 7105013-7 (Version None)
Quarter: 2010Q4

REPORT INFORMATION
  Report Type: 
  Country: None (occurrence: None)
  Receive Date: 20101116
  Receipt Date: 20101109
  Transmission Date: 20110411
  Serious: Yes (Death)
  Sender: FDA-Public Use
  Company Number: PHEH2007US16428

PATIENT
  Sex: Male
  Weight: 65.8 kg

DRUGS (5)
  1. EXJADE [Suspect]
     Indication: IRON OVERLOAD
     Dosage: 500 MG, QD
     Route: 048
     Dates: start: 20060824, end: 20060913
  2. COMPAZINE [Concomitant]
     Indication: NAUSEA
     Dosage: UNK
     Route: 048
  3. DANOA [Concomitant]
     Dosage: UNK
     Route: 048
     Dates: start: 20060622
  4. NEUPOGEN [Concomitant]
     Dosage: DAY 8-12 EVERY 21 DAYS
     Route: 058
  5. PROCRIT [Concomitant]
     Dosage: UNK

REACTIONS (1)
  - DEATH [None]
